FAERS Safety Report 9507185 (Version 1)
Quarter: 2013Q3

REPORT INFORMATION
  Report Type: Spontaneous
  Country: US (occurrence: None)
  Receive Date: 20130904
  Receipt Date: 20130904
  Transmission Date: 20140515
  Serious: Yes (Other)
  Sender: FDA-Public Use
  Company Number: MC201300413

PATIENT
  Age: 28 Year
  Sex: Female

DRUGS (1)
  1. CLEVIPREX [Suspect]
     Indication: HYPERTENSION
     Route: 042
     Dates: start: 20130825, end: 20130825

REACTIONS (8)
  - Aspartate aminotransferase increased [None]
  - Alanine aminotransferase increased [None]
  - Abnormal clotting factor [None]
  - Blood pressure increased [None]
  - Oxygen saturation decreased [None]
  - Heart rate increased [None]
  - Epistaxis [None]
  - Malaise [None]
